FAERS Safety Report 21863544 (Version 1)
Quarter: 2023Q1

REPORT INFORMATION
  Report Type: Spontaneous
  Country: US (occurrence: US)
  Receive Date: 20230115
  Receipt Date: 20230115
  Transmission Date: 20230418
  Serious: No
  Sender: FDA-Public Use
  Company Number: US-APOTEX-2022AP017673

PATIENT
  Age: 53 Year
  Sex: Female

DRUGS (14)
  1. BUPROPION [Suspect]
     Active Substance: BUPROPION
     Indication: Generalised anxiety disorder
     Dosage: UNK
     Route: 065
  2. TRAZODONE [Suspect]
     Active Substance: TRAZODONE HYDROCHLORIDE
     Indication: Generalised anxiety disorder
     Dosage: UNK
     Route: 065
  3. PREGABALIN [Interacting]
     Active Substance: PREGABALIN
     Indication: Generalised anxiety disorder
     Dosage: 75 MILLIGRAM, BID
     Route: 065
  4. DULOXETINE [Interacting]
     Active Substance: DULOXETINE
     Indication: Generalised anxiety disorder
     Dosage: 60 MILLIGRAM, QD
     Route: 065
  5. DULOXETINE [Interacting]
     Active Substance: DULOXETINE
     Dosage: 90 MILLIGRAM, QD
     Route: 065
  6. DULOXETINE [Interacting]
     Active Substance: DULOXETINE
     Dosage: 60 MILLIGRAM, QD
     Route: 065
  7. BUSPIRONE [Concomitant]
     Active Substance: BUSPIRONE HYDROCHLORIDE
     Indication: Generalised anxiety disorder
     Dosage: UNK
     Route: 065
  8. OMEPRAZOLE [Concomitant]
     Active Substance: OMEPRAZOLE
     Indication: Product used for unknown indication
     Dosage: 40 MILLIGRAM, QD
     Route: 065
  9. FLUTICASONE [Concomitant]
     Active Substance: FLUTICASONE
     Indication: Product used for unknown indication
     Dosage: 50 MICROGRAM, QD (2 SPRAYS IN EACH NOSTRIL)
     Route: 045
  10. LORATADINE [Concomitant]
     Active Substance: LORATADINE
     Indication: Product used for unknown indication
     Dosage: 10 MILLIGRAM, QD
     Route: 065
  11. ASPIRIN [Concomitant]
     Active Substance: ASPIRIN
     Indication: Product used for unknown indication
     Dosage: 81 MILLIGRAM, QD
     Route: 065
  12. PRAVASTATIN [Concomitant]
     Active Substance: PRAVASTATIN
     Indication: Product used for unknown indication
     Dosage: 20 MILLIGRAM, QD
     Route: 065
  13. CYCLOBENZAPRINE [Concomitant]
     Active Substance: CYCLOBENZAPRINE
     Indication: Product used for unknown indication
     Dosage: 10 MILLIGRAM, DAILY AS NEEDED (USED ABOUT ONCE MONTHLY)
     Route: 065
  14. PROPRANOLOL [Concomitant]
     Active Substance: PROPRANOLOL HYDROCHLORIDE
     Indication: Product used for unknown indication
     Dosage: 160 MILLIGRAM, QD, FOR SEVERAL YEARS
     Route: 065

REACTIONS (3)
  - Priapism [Recovered/Resolved]
  - Vulval disorder [Recovered/Resolved]
  - Drug interaction [Unknown]
